FAERS Safety Report 5485670-1 (Version None)
Quarter: 2007Q4

REPORT INFORMATION
  Report Type: 
  Country: None (occurrence: None)
  Receive Date: 20071011
  Receipt Date: 20071011
  Transmission Date: 20080405
  Serious: Yes (Disabling)
  Sender: FDA-Public Use
  Company Number: None

PATIENT
  Age: 54 Year
  Sex: Male
  Weight: 79.3795 kg

DRUGS (1)
  1. PRILOSEC [Suspect]
     Indication: HYPERCHLORHYDRIA
     Dosage: 20MG  AS DIRECTED  PO
     Route: 048
     Dates: start: 20071005, end: 20071009

REACTIONS (3)
  - BLOOD PRESSURE INCREASED [None]
  - HEADACHE [None]
  - PALPITATIONS [None]
